FAERS Safety Report 13557310 (Version 1)
Quarter: 2017Q2

REPORT INFORMATION
  Report Type: Spontaneous
  Country: CA (occurrence: CA)
  Receive Date: 20170517
  Receipt Date: 20170517
  Transmission Date: 20170830
  Serious: Yes (Hospitalization)
  Sender: FDA-Public Use
  Company Number: CA-HLSUS-2017-CA-000383

PATIENT
  Age: 62 Year
  Sex: Male
  Weight: 56 kg

DRUGS (12)
  1. ARIPRIPAZOLE [Concomitant]
  2. BENZTROPINE [Concomitant]
     Active Substance: BENZTROPINE
  3. CLOZARIL [Suspect]
     Active Substance: CLOZAPINE
     Indication: BIPOLAR I DISORDER
     Dosage: 25MG WITH MEALS, 175MG DAILY BED TIME
     Route: 048
     Dates: start: 2014, end: 20170221
  4. LEVETIRACETAM. [Concomitant]
     Active Substance: LEVETIRACETAM
  5. ROSUVASTATIN. [Concomitant]
     Active Substance: ROSUVASTATIN
  6. TRIMETHOPRIM/SULFAMETHOXAZOLE (TMP/SMX) [Concomitant]
     Indication: MALAISE
     Dosage: 1 TABLET BID
     Route: 048
     Dates: start: 20170218, end: 20170221
  7. PANTOPRAZOLE [Concomitant]
     Active Substance: PANTOPRAZOLE
  8. LANTUS [Concomitant]
     Active Substance: INSULIN GLARGINE
  9. PHENYCYLIDINE [Concomitant]
  10. FERROUS SULFATE. [Concomitant]
     Active Substance: FERROUS SULFATE
  11. MAGNESIUM ELEMENTAL [Concomitant]
  12. FLOVENT [Concomitant]
     Active Substance: FLUTICASONE PROPIONATE

REACTIONS (5)
  - Renal tubular necrosis [Recovered/Resolved with Sequelae]
  - Acute kidney injury [Recovered/Resolved with Sequelae]
  - Asthenia [Unknown]
  - Depressed level of consciousness [Unknown]
  - Haematemesis [Unknown]

NARRATIVE: CASE EVENT DATE: 20170221
